FAERS Safety Report 9057988 (Version 1)
Quarter: 2013Q1

REPORT INFORMATION
  Report Type: Spontaneous
  Country: US (occurrence: None)
  Receive Date: 20130204
  Receipt Date: 20130204
  Transmission Date: 20140127
  Serious: Yes (Other)
  Sender: FDA-Public Use
  Company Number: None

PATIENT
  Sex: 0

DRUGS (1)
  1. ATELVIA [Suspect]

REACTIONS (5)
  - Back pain [None]
  - Mass [None]
  - Discomfort [None]
  - Posture abnormal [None]
  - Diarrhoea [None]
